FAERS Safety Report 17304475 (Version 1)
Quarter: 2020Q1

REPORT INFORMATION
  Report Type: Spontaneous
  Country: US (occurrence: US)
  Receive Date: 20200106
  Receipt Date: 20200106
  Transmission Date: 20200409
  Serious: No
  Sender: FDA-Public Use
  Company Number: None

PATIENT
  Age: 70 Year
  Sex: Male

DRUGS (1)
  1. REPATHA [Suspect]
     Active Substance: EVOLOCUMAB
     Dosage: OTHER
     Route: 058
     Dates: start: 201911

REACTIONS (4)
  - Genital rash [None]
  - Testicular disorder [None]
  - Genital burning sensation [None]
  - Pruritus genital [None]

NARRATIVE: CASE EVENT DATE: 20191106
